FAERS Safety Report 4901333-2 (Version None)
Quarter: 2006Q1

REPORT INFORMATION
  Report Type: 
  Country: None (occurrence: None)
  Receive Date: 20060202
  Receipt Date: 20060123
  Transmission Date: 20060701
  Serious: Yes (Hospitalization, Other)
  Sender: FDA-Public Use
  Company Number: 2005-12-1114

PATIENT
  Age: 20 Year
  Sex: Male
  Weight: 72.5755 kg

DRUGS (1)
  1. ALBUTEROL [Suspect]
     Indication: DYSPNOEA
     Dosage: ORAL AER INH
     Route: 055
     Dates: start: 20000302, end: 20000304

REACTIONS (6)
  - DIZZINESS [None]
  - HALLUCINATION [None]
  - NERVOUS SYSTEM DISORDER [None]
  - NERVOUSNESS [None]
  - PARANOIA [None]
  - PHARMACEUTICAL PRODUCT COMPLAINT [None]
